FAERS Safety Report 17026716 (Version 1)
Quarter: 2019Q4

REPORT INFORMATION
  Report Type: Spontaneous
  Country: BR (occurrence: BR)
  Receive Date: 20191113
  Receipt Date: 20191113
  Transmission Date: 20200122
  Serious: Yes (Other)
  Sender: FDA-Public Use
  Company Number: NVSC2019BR027049

PATIENT
  Age: 5 Year
  Sex: Male
  Weight: 15 kg

DRUGS (3)
  1. IBUPROFENO [Concomitant]
     Active Substance: IBUPROFEN
     Indication: PRODUCT USED FOR UNKNOWN INDICATION
     Route: 065
  2. PREDNISOLONE. [Suspect]
     Active Substance: PREDNISOLONE
     Indication: PRODUCT USED FOR UNKNOWN INDICATION
     Dosage: 2 MG/KG, QD
     Route: 065
  3. TOCILIZUMAB. [Suspect]
     Active Substance: TOCILIZUMAB
     Indication: PRODUCT USED FOR UNKNOWN INDICATION
     Dosage: UNK
     Route: 065
     Dates: start: 201902

REACTIONS (15)
  - Cyanosis [Unknown]
  - Synovitis [Not Recovered/Not Resolved]
  - C-reactive protein increased [Not Recovered/Not Resolved]
  - Tachycardia [Unknown]
  - Livedo reticularis [Unknown]
  - Pyrexia [Recovered/Resolved]
  - Vomiting [Unknown]
  - Therapy non-responder [Unknown]
  - Arthritis [Unknown]
  - Red blood cell sedimentation rate increased [Not Recovered/Not Resolved]
  - Thrombocytosis [Not Recovered/Not Resolved]
  - Juvenile idiopathic arthritis [Not Recovered/Not Resolved]
  - Infusion related reaction [Unknown]
  - Anaemia [Not Recovered/Not Resolved]
  - Bronchospasm [Unknown]

NARRATIVE: CASE EVENT DATE: 201902
